FAERS Safety Report 10039532 (Version 3)
Quarter: 2016Q1

REPORT INFORMATION
  Report Type: Report from Study
  Country: US (occurrence: US)
  Receive Date: 20140326
  Receipt Date: 20160330
  Transmission Date: 20160525
  Serious: Yes (Life-Threatening, Congenital Anomaly, Other)
  Sender: FDA-Public Use
  Company Number: US-ABBVIE-10P-163-0639012-00

PATIENT
  Age: 10 Month
  Sex: Male
  Weight: 2.32 kg

DRUGS (1)
  1. HUMIRA [Suspect]
     Active Substance: ADALIMUMAB
     Indication: MATERNAL EXPOSURE TIMING UNSPECIFIED
     Route: 064

REACTIONS (20)
  - Supraventricular tachycardia [Unknown]
  - Epilepsy [Unknown]
  - Cerebral palsy [Unknown]
  - Victim of child abuse [Unknown]
  - Sinus bradycardia [Unknown]
  - Dysphagia [Unknown]
  - Wheelchair user [Unknown]
  - Foetal exposure during pregnancy [Unknown]
  - Hypotonia [Unknown]
  - Muscular weakness [Unknown]
  - Premature baby [Recovered/Resolved]
  - Nystagmus [Unknown]
  - Developmental delay [Unknown]
  - Abasia [Unknown]
  - Visual impairment [Unknown]
  - Foetal distress syndrome [Unknown]
  - Strabismus [Unknown]
  - Cerebellar hypoplasia [Unknown]
  - Speech disorder [Unknown]
  - Failure to thrive [Unknown]

NARRATIVE: CASE EVENT DATE: 20110209
